FAERS Safety Report 15245900 (Version 1)
Quarter: 2018Q3

REPORT INFORMATION
  Report Type: Spontaneous
  Country: US (occurrence: US)
  Receive Date: 20180806
  Receipt Date: 20180806
  Transmission Date: 20181010
  Serious: Yes (Other)
  Sender: FDA-Public Use
  Company Number: PHEH2018US031342

PATIENT
  Sex: Female

DRUGS (1)
  1. TEGRETOL [Suspect]
     Active Substance: CARBAMAZEPINE
     Indication: PRODUCT USED FOR UNKNOWN INDICATION
     Dosage: 200 MG, TID
     Route: 065

REACTIONS (6)
  - Rash [Unknown]
  - Oral mucosal eruption [Unknown]
  - Tumour invasion [Unknown]
  - Respiration abnormal [Unknown]
  - Migraine [Unknown]
  - Seizure [Unknown]
